FAERS Safety Report 5256939-0 (Version None)
Quarter: 2007Q1

REPORT INFORMATION
  Report Type: 
  Country: None (occurrence: None)
  Receive Date: 20070305
  Receipt Date: 20070305
  Transmission Date: 20070707
  Serious: Yes (Hospitalization)
  Sender: FDA-Public Use
  Company Number: None

PATIENT
  Age: 76 Year
  Sex: Male
  Weight: 97 kg

DRUGS (1)
  1. NELFINAVIR [Suspect]
     Indication: LIPOSARCOMA
     Dosage: 2500 MG BID PO
     Route: 048
     Dates: start: 20060810, end: 20070125

REACTIONS (4)
  - DEPRESSED LEVEL OF CONSCIOUSNESS [None]
  - HYPERCAPNIA [None]
  - POST PROCEDURAL COMPLICATION [None]
  - RESPIRATORY FAILURE [None]
